FAERS Safety Report 6623462-8 (Version None)
Quarter: 2010Q1

REPORT INFORMATION
  Report Type: 
  Country: None (occurrence: None)
  Receive Date: 20100310
  Receipt Date: 20100225
  Transmission Date: 20100710
  Serious: Yes (Death)
  Sender: FDA-Public Use
  Company Number: BE-BRISTOL-MYERS SQUIBB COMPANY-14965362

PATIENT
  Age: 58 Year
  Sex: Female

DRUGS (8)
  1. ABILIFY [Suspect]
     Indication: PSYCHOTIC DISORDER
     Dosage: 30MG IN THE MORNINGS
  2. SEROQUEL [Suspect]
     Indication: PSYCHOTIC DISORDER
     Dosage: DOSE INCREASED TO 900MG, THEN TO 1200MG AND 1600 AND LATER REDUCED TO 1200.
     Route: 048
  3. INVEGA [Suspect]
     Indication: PSYCHOTIC DISORDER
  4. DEPAKENE [Suspect]
     Indication: PSYCHOTIC DISORDER
  5. CAMCOLIT [Suspect]
     Indication: PSYCHOTIC DISORDER
  6. DIPIPERON [Suspect]
     Indication: PSYCHOTIC DISORDER
  7. HALDOL [Suspect]
     Indication: PSYCHOTIC DISORDER
  8. LORAMET [Suspect]
     Indication: PSYCHOTIC DISORDER

REACTIONS (3)
  - AGITATION [None]
  - INTESTINAL OBSTRUCTION [None]
  - SEPTIC SHOCK [None]
